FAERS Safety Report 8487645-7 (Version None)
Quarter: 2012Q3

REPORT INFORMATION
  Report Type: 
  Country: None (occurrence: None)
  Receive Date: 20120705
  Receipt Date: 20120621
  Transmission Date: 20120928
  Serious: Yes (Life-Threatening, Hospitalization)
  Sender: FDA-Public Use
  Company Number: US-BAYER-2011-032102

PATIENT
  Age: 15 Year
  Sex: Female
  Weight: 82.54 kg

DRUGS (9)
  1. FLONASE [Concomitant]
  2. YASMIN [Suspect]
     Dosage: UNK
     Dates: start: 20090101, end: 20090201
  3. ABILIFY [Concomitant]
     Dosage: 10 MG, UNK
     Route: 048
     Dates: start: 20090201
  4. CLONAZEPAM [Concomitant]
     Dosage: 0.5MG AT NIGHT AND 0.25MG TO 0.5MG IN THE MORNING
     Route: 048
     Dates: start: 20090101
  5. FLUTICASONE PROPIONATE [Concomitant]
     Dosage: INHALE 2 SPRAYS IN EACH NOSTRIL EVERYDAY
     Route: 045
     Dates: start: 20090201
  6. DROSPIRENONE AND ETHINYL ESTRADIOL [Suspect]
     Indication: PREMENSTRUAL SYNDROME
     Dosage: UNK
     Route: 048
     Dates: start: 20090101, end: 20090201
  7. GABAPENTIN [Concomitant]
     Dosage: 300 MG, HS
     Route: 048
     Dates: start: 20090101
  8. AMOXICILLIN AND CLAVULANATE POTASSIUM [Concomitant]
     Dosage: 875 MG, BID
     Route: 048
     Dates: start: 20090201, end: 20090101
  9. ZYRTEC [Concomitant]
     Dosage: UNK
     Route: 048
     Dates: start: 20090115

REACTIONS (4)
  - ANXIETY [None]
  - DEEP VEIN THROMBOSIS [None]
  - PULMONARY EMBOLISM [None]
  - THROMBOSIS [None]
